FAERS Safety Report 16680515 (Version 1)
Quarter: 2019Q3

REPORT INFORMATION
  Report Type: Spontaneous
  Country: CA (occurrence: CA)
  Receive Date: 20190807
  Receipt Date: 20190807
  Transmission Date: 20191004
  Serious: Yes (Other)
  Sender: FDA-Public Use
  Company Number: CA-AMGEN-CANSP2019123246

PATIENT
  Age: 36 Year
  Sex: Female

DRUGS (5)
  1. FOLINIC ACID [Concomitant]
     Active Substance: LEUCOVORIN
     Indication: COLON CANCER METASTATIC
     Dosage: UNK
     Dates: start: 201602
  2. IRINOTECAN [Concomitant]
     Active Substance: IRINOTECAN
     Indication: COLON CANCER METASTATIC
     Dosage: UNK
     Dates: start: 2016
  3. 5-FLUOROURACIL [FLUOROURACIL] [Concomitant]
     Active Substance: FLUOROURACIL
     Indication: COLON CANCER METASTATIC
     Dosage: UNK
     Dates: start: 201602
  4. PANITUMUMAB [Suspect]
     Active Substance: PANITUMUMAB
     Indication: COLON CANCER METASTATIC
     Dosage: UNK
     Route: 065
     Dates: start: 2016, end: 2017
  5. PANITUMUMAB [Suspect]
     Active Substance: PANITUMUMAB
     Dosage: UNK
     Route: 065

REACTIONS (4)
  - Fatigue [Unknown]
  - Rash [Unknown]
  - Constipation [Unknown]
  - Colon cancer metastatic [Unknown]

NARRATIVE: CASE EVENT DATE: 2016
